FAERS Safety Report 15378927 (Version 1)
Quarter: 2018Q3

REPORT INFORMATION
  Report Type: Spontaneous
  Country: FR (occurrence: FR)
  Receive Date: 20180913
  Receipt Date: 20180913
  Transmission Date: 20181010
  Serious: Yes (Other)
  Sender: FDA-Public Use
  Company Number: FR-SA-2013SA104072

PATIENT
  Age: 71 Year
  Sex: Male

DRUGS (6)
  1. CLINDAMYCIN PHOSPHATE. [Suspect]
     Active Substance: CLINDAMYCIN PHOSPHATE
     Indication: PRODUCT USED FOR UNKNOWN INDICATION
     Dosage: NP
     Route: 041
     Dates: start: 20130813, end: 20130903
  2. TAZOCILLINE [Concomitant]
     Active Substance: PIPERACILLIN SODIUM\TAZOBACTAM SODIUM
     Indication: PRODUCT USED FOR UNKNOWN INDICATION
     Dosage: UNK
     Route: 065
     Dates: start: 20130807, end: 20130813
  3. VANCOMYCIN HYDROCHLORIDE. [Concomitant]
     Active Substance: VANCOMYCIN HYDROCHLORIDE
     Dosage: UNK
     Dates: start: 20130813
  4. RIFADINE [Suspect]
     Active Substance: RIFAMPIN
     Indication: LUNG ABSCESS
     Dosage: NP
     Route: 041
     Dates: start: 20130826, end: 20130903
  5. VANCOMYCIN HYDROCHLORIDE. [Concomitant]
     Active Substance: VANCOMYCIN HYDROCHLORIDE
     Indication: LUNG ABSCESS
     Dosage: UNK
     Dates: start: 20130804, end: 20130807
  6. MERONEM [Concomitant]
     Active Substance: MEROPENEM
     Indication: PRODUCT USED FOR UNKNOWN INDICATION
     Dosage: UNK
     Route: 065
     Dates: start: 20130804, end: 20130807

REACTIONS (5)
  - Renal tubular necrosis [Unknown]
  - Renal failure [Unknown]
  - Toxic skin eruption [Recovered/Resolved]
  - Pruritus [Recovered/Resolved]
  - Rash macular [Recovered/Resolved]

NARRATIVE: CASE EVENT DATE: 20130826
